FAERS Safety Report 18228468 (Version 1)
Quarter: 2020Q3

REPORT INFORMATION
  Report Type: Spontaneous
  Country: AR (occurrence: AR)
  Receive Date: 20200903
  Receipt Date: 20200903
  Transmission Date: 20201103
  Serious: Yes (Hospitalization)
  Sender: FDA-Public Use
  Company Number: NVSC2020AR240243

PATIENT
  Age: 83 Year
  Sex: Female

DRUGS (1)
  1. AZARGA [Suspect]
     Active Substance: BRINZOLAMIDE\TIMOLOL MALEATE
     Indication: OCULAR DISCOMFORT
     Dosage: 1 IN EACH EYE, IN THE NIGHT AND EVENING SINCE 4 TO 5 YEARS AGO APPROXIAMTELY
     Route: 047

REACTIONS (3)
  - Fall [Unknown]
  - Osteoarthritis [Unknown]
  - Gallbladder disorder [Unknown]

NARRATIVE: CASE EVENT DATE: 20190625
